FAERS Safety Report 15651875 (Version 15)
Quarter: 2021Q2

REPORT INFORMATION
  Report Type: Spontaneous
  Country: BR (occurrence: BR)
  Receive Date: 20181123
  Receipt Date: 20210423
  Transmission Date: 20210716
  Serious: Yes (Hospitalization, Other)
  Sender: FDA-Public Use
  Company Number: BR-GLAXOSMITHKLINE-BR2018GSK210913

PATIENT
  Sex: Female
  Weight: 64 kg

DRUGS (13)
  1. METHOTREXATE. [Concomitant]
     Active Substance: METHOTREXATE
     Indication: PRODUCT USED FOR UNKNOWN INDICATION
     Dosage: 2.5 MG
  2. PREDNISONE. [Concomitant]
     Active Substance: PREDNISONE
     Indication: PRODUCT USED FOR UNKNOWN INDICATION
     Dosage: 20 MG
  3. PREDNISONE. [Concomitant]
     Active Substance: PREDNISONE
     Dosage: 40 MG
  4. BENLYSTA [Suspect]
     Active Substance: BELIMUMAB
     Dosage: 400 UNK
     Dates: start: 20200409
  5. AMITRIPTYLINE [Concomitant]
     Active Substance: AMITRIPTYLINE
     Indication: PRODUCT USED FOR UNKNOWN INDICATION
     Dosage: 25 MG
  6. REUQUINOL [Concomitant]
     Active Substance: HYDROXYCHLOROQUINE SULFATE
     Indication: PRODUCT USED FOR UNKNOWN INDICATION
     Dosage: 400 MG
  7. CALCIUM [Concomitant]
     Active Substance: CALCIUM
     Indication: PRODUCT USED FOR UNKNOWN INDICATION
     Dosage: 600 MG
  8. FOLIC ACID. [Concomitant]
     Active Substance: FOLIC ACID
     Indication: PRODUCT USED FOR UNKNOWN INDICATION
     Dosage: UNK
  9. PANTOPRAZOLE [Concomitant]
     Active Substance: PANTOPRAZOLE
     Indication: PRODUCT USED FOR UNKNOWN INDICATION
     Dosage: 400 MG
  10. AMOXYCILLIN [Suspect]
     Active Substance: AMOXICILLIN
     Indication: ACNE
     Dosage: UNK
  11. BENLYSTA [Suspect]
     Active Substance: BELIMUMAB
     Dosage: 650 MG
  12. OMEPRAZOLE. [Concomitant]
     Active Substance: OMEPRAZOLE
     Indication: PRODUCT USED FOR UNKNOWN INDICATION
     Dosage: UNK
  13. BENLYSTA [Suspect]
     Active Substance: BELIMUMAB
     Indication: SYSTEMIC LUPUS ERYTHEMATOSUS
     Dosage: 720 MG
     Dates: start: 20190211

REACTIONS (25)
  - Bone pain [Unknown]
  - Asthenia [Unknown]
  - Disease recurrence [Unknown]
  - Social problem [Unknown]
  - Weight decreased [Unknown]
  - Depressed mood [Unknown]
  - Product dose omission issue [Recovered/Resolved]
  - Hospitalisation [Recovered/Resolved]
  - Skin lesion [Unknown]
  - Arthralgia [Unknown]
  - Malaise [Recovered/Resolved]
  - Swelling [Recovered/Resolved]
  - Product availability issue [Recovered/Resolved]
  - Viral infection [Recovered/Resolved]
  - Therapy interrupted [Recovered/Resolved]
  - Pharyngitis [Recovered/Resolved]
  - Weight increased [Recovered/Resolved]
  - Peripheral swelling [Recovered/Resolved]
  - Therapeutic response unexpected [Unknown]
  - Pain [Recovered/Resolved]
  - Arthralgia [Recovered/Resolved]
  - Infection [Recovered/Resolved]
  - Overdose [Unknown]
  - Rash papular [Unknown]
  - Inappropriate schedule of product administration [Recovered/Resolved]
